FAERS Safety Report 13803236 (Version 1)
Quarter: 2017Q3

REPORT INFORMATION
  Report Type: Report from Study
  Country: PL (occurrence: PL)
  Receive Date: 20170728
  Receipt Date: 20170728
  Transmission Date: 20171127
  Serious: Yes (Other)
  Sender: FDA-Public Use
  Company Number: PL-PFIZER INC-2017325897

PATIENT
  Age: 18 Year
  Sex: Female

DRUGS (3)
  1. VINCRISTINE SULFATE. [Suspect]
     Active Substance: VINCRISTINE SULFATE
     Indication: RETINOBLASTOMA
     Dosage: UNK
  2. CARBOPLATIN. [Suspect]
     Active Substance: CARBOPLATIN
     Indication: RETINOBLASTOMA
     Dosage: UNK
  3. ETOPOSIDE. [Suspect]
     Active Substance: ETOPOSIDE
     Indication: RETINOBLASTOMA
     Dosage: UNK (CUMULATIVE DOSE OF 1.8G/M2)

REACTIONS (2)
  - Glioblastoma multiforme [Recovering/Resolving]
  - Second primary malignancy [Recovering/Resolving]
